FAERS Safety Report 15916867 (Version 2)
Quarter: 2019Q1

REPORT INFORMATION
  Report Type: Spontaneous
  Country: JP (occurrence: JP)
  Receive Date: 20190205
  Receipt Date: 20190307
  Transmission Date: 20190417
  Serious: Yes (Hospitalization, Disabling, Other)
  Sender: FDA-Public Use
  Company Number: JP-REGENERON PHARMACEUTICALS, INC.-2019-13339

PATIENT

DRUGS (3)
  1. EYLEA [Suspect]
     Active Substance: AFLIBERCEPT
     Dosage: UNK, ONCE, RIGHT
     Route: 031
     Dates: start: 20181221, end: 20181221
  2. EYLEA [Suspect]
     Active Substance: AFLIBERCEPT
     Dosage: UNK, ONCE, RIGHT
     Route: 031
     Dates: start: 20181116, end: 20181116
  3. EYLEA [Suspect]
     Active Substance: AFLIBERCEPT
     Indication: DIABETIC RETINAL OEDEMA
     Dosage: 2 MG, ONCE, LEFT
     Route: 031
     Dates: start: 20181102, end: 20181102

REACTIONS (5)
  - Ataxia [Unknown]
  - Dyslalia [Unknown]
  - General physical health deterioration [Unknown]
  - Hemiplegia [Unknown]
  - Thrombotic cerebral infarction [Recovered/Resolved with Sequelae]

NARRATIVE: CASE EVENT DATE: 20181228
